FAERS Safety Report 7295220-5 (Version None)
Quarter: 2011Q1

REPORT INFORMATION
  Report Type: 
  Country: None (occurrence: None)
  Receive Date: 20110216
  Receipt Date: 20101220
  Transmission Date: 20110831
  Serious: No
  Sender: FDA-Public Use
  Company Number: A0900631A

PATIENT
  Age: 56 Year
  Sex: Male

DRUGS (12)
  1. LIPITOR [Concomitant]
  2. VOTRIENT [Suspect]
     Dosage: 800MG PER DAY
     Route: 048
     Dates: start: 20101116, end: 20101126
  3. NIFEDIPINE [Concomitant]
  4. NEXIUM [Concomitant]
  5. CALCITRIOL [Concomitant]
  6. STOOL SOFTENER [Concomitant]
  7. SPIRIVA [Concomitant]
  8. K-DUR [Concomitant]
  9. COREG [Concomitant]
  10. KLOR-CON [Concomitant]
  11. FUROSEMIDE [Concomitant]
  12. LORAZEPAM [Concomitant]

REACTIONS (1)
  - ABDOMINAL PAIN UPPER [None]
